FAERS Safety Report 4562965-7 (Version None)
Quarter: 2005Q1

REPORT INFORMATION
  Report Type: 
  Country: None (occurrence: None)
  Receive Date: 20050121
  Receipt Date: 20050112
  Transmission Date: 20050727
  Serious: Yes (Other)
  Sender: FDA-Public Use
  Company Number: DEU-2002-0000092

PATIENT
  Sex: Female
  Weight: 96 kg

DRUGS (4)
  1. OXYGESIC 20 MG (OXYCODONE HYDROCHLORIDE) CR TABLET [Suspect]
     Indication: BACK PAIN
     Dosage: 20 MG, TID, ORAL
     Route: 048
     Dates: start: 20020201, end: 20020201
  2. PHENPROCOUMON (PHENPROCOUMON) [Suspect]
     Indication: PULMONARY EMBOLISM
     Dosage: ORAL
     Route: 048
  3. METOCLOPRAMIDE HYDROCHLORIDE [Concomitant]
  4. CAPTOPRIL [Concomitant]

REACTIONS (2)
  - DRUG INTERACTION [None]
  - PROTHROMBIN TIME SHORTENED [None]
